FAERS Safety Report 8396641-X (Version None)
Quarter: 2012Q1

REPORT INFORMATION
  Report Type: 
  Country: None (occurrence: None)
  Receive Date: 20120323
  Receipt Date: 20111123
  Transmission Date: 20120608
  Serious: Yes (Disabling)
  Sender: FDA-Public Use
  Company Number: 163-21880-11040108

PATIENT
  Age: 61 Year
  Sex: Female

DRUGS (5)
  1. DEXAMETHASONE [Concomitant]
  2. VELCADE [Concomitant]
  3. AREDIA [Concomitant]
  4. REVLIMID [Suspect]
     Indication: MULTIPLE MYELOMA
     Dosage: 25 MG, QD, PO
     Route: 048
     Dates: start: 20090401, end: 20101201
  5. REVLIMID [Suspect]
     Indication: MULTIPLE MYELOMA
     Dosage: 25 MG, QD, PO
     Route: 048
     Dates: start: 20110101, end: 20110301

REACTIONS (3)
  - FATIGUE [None]
  - NEUROPATHY PERIPHERAL [None]
  - DIARRHOEA [None]
